FAERS Safety Report 14092528 (Version 2)
Quarter: 2018Q2

REPORT INFORMATION
  Report Type: Report from Study
  Country: DE (occurrence: DE)
  Receive Date: 20171016
  Receipt Date: 20180519
  Transmission Date: 20180711
  Serious: Yes (Other)
  Sender: FDA-Public Use
  Company Number: DE-ROCHE-1776582

PATIENT

DRUGS (5)
  1. PARITAPREVIR [Suspect]
     Active Substance: PARITAPREVIR
     Indication: CHRONIC HEPATITIS C
     Route: 048
  2. OMBITASVIR [Suspect]
     Active Substance: OMBITASVIR
     Indication: CHRONIC HEPATITIS C
     Route: 048
  3. DASABUVIR [Suspect]
     Active Substance: DASABUVIR
     Indication: CHRONIC HEPATITIS C
     Route: 048
  4. RITONAVIR. [Suspect]
     Active Substance: RITONAVIR
     Indication: CHRONIC HEPATITIS C
     Route: 048
  5. RIBAVIRIN. [Suspect]
     Active Substance: RIBAVIRIN
     Indication: CHRONIC HEPATITIS C
     Dosage: LABEL-RECOMMENDED DOSAGE OF RBV WAS 1200 OR 1000 MG (DIVIDED INTO TWO DAILY DOSES).
     Route: 048

REACTIONS (13)
  - Anaemia [Unknown]
  - Blood bilirubin increased [Unknown]
  - Jaundice [Unknown]
  - Fatigue [Unknown]
  - Headache [Unknown]
  - Aspartate aminotransferase increased [Unknown]
  - Hyperbilirubinaemia [Unknown]
  - Blood glucose abnormal [Unknown]
  - Alanine aminotransferase increased [Unknown]
  - Pruritus [Unknown]
  - Abdominal discomfort [Unknown]
  - Haemoglobin decreased [Unknown]
  - Insomnia [Unknown]
